FAERS Safety Report 10501135 (Version 1)
Quarter: 2014Q4

REPORT INFORMATION
  Report Type: Spontaneous
  Country: US (occurrence: None)
  Receive Date: 20141006
  Receipt Date: 20141006
  Transmission Date: 20150528
  Serious: Yes (Disabling, Other)
  Sender: FDA-Public Use
  Company Number: None

PATIENT
  Age: 59 Year
  Sex: Female
  Weight: 56.7 kg

DRUGS (10)
  1. DIAZEPAM. [Concomitant]
     Active Substance: DIAZEPAM
  2. CAYENNE [Concomitant]
  3. DONOQUAL [Concomitant]
  4. FIORINAL [Suspect]
     Active Substance: ASPIRIN\BUTALBITAL\CAFFEINE
     Indication: MIGRAINE
     Dosage: 1 TO 2 EVERY 6 HOURS ?40 PILLS?
     Route: 048
     Dates: start: 2000
  5. IBUPROFEN. [Concomitant]
     Active Substance: IBUPROFEN
  6. OXYGEN W/MIGRAINES [Concomitant]
  7. MILK THISTLE [Concomitant]
     Active Substance: MILK THISTLE
  8. NAPROXEN. [Concomitant]
     Active Substance: NAPROXEN
  9. DICLOFENAC [Concomitant]
     Active Substance: DICLOFENAC
  10. LIQ. MULTI VITS [Concomitant]

REACTIONS (4)
  - Inadequate analgesia [None]
  - Product substitution issue [None]
  - Lethargy [None]
  - Nausea [None]

NARRATIVE: CASE EVENT DATE: 20140912
